FAERS Safety Report 9679235 (Version 1)
Quarter: 2013Q4

REPORT INFORMATION
  Report Type: Spontaneous
  Country: CN (occurrence: CN)
  Receive Date: 20131108
  Receipt Date: 20131108
  Transmission Date: 20140711
  Serious: Yes (Hospitalization, Other)
  Sender: FDA-Public Use
  Company Number: CN-JNJFOC-20131015276

PATIENT
  Age: 2 Year
  Sex: Male
  Weight: 17 kg

DRUGS (3)
  1. MOTRIN SUSPENSION [Suspect]
     Route: 048
  2. MOTRIN SUSPENSION [Suspect]
     Indication: PYREXIA
     Route: 048
     Dates: start: 20131012, end: 20131020
  3. TYLENOL COLD [Suspect]
     Indication: PYREXIA
     Route: 048
     Dates: start: 20131021, end: 20131021

REACTIONS (4)
  - Pneumonia [Recovered/Resolved]
  - Overdose [Recovered/Resolved]
  - Incorrect drug administration duration [Recovered/Resolved]
  - Coagulation time prolonged [Recovered/Resolved]
